FAERS Safety Report 17175681 (Version 2)
Quarter: 2020Q1

REPORT INFORMATION
  Report Type: Spontaneous
  Country: US (occurrence: US)
  Receive Date: 20191219
  Receipt Date: 20200220
  Transmission Date: 20200409
  Serious: No
  Sender: FDA-Public Use
  Company Number: US-JNJFOC-20191215067

PATIENT
  Age: 62 Year
  Sex: Female
  Weight: 70.37 kg

DRUGS (1)
  1. WOMENS ROGAINE [Suspect]
     Active Substance: MINOXIDIL
     Indication: ALOPECIA
     Dosage: ONE EYE DROPPER
     Route: 061

REACTIONS (4)
  - Application site erythema [Recovered/Resolved]
  - Application site pain [Recovered/Resolved]
  - Incorrect dose administered [Unknown]
  - Application site vesicles [Recovered/Resolved]

NARRATIVE: CASE EVENT DATE: 20191031
